FAERS Safety Report 15575775 (Version 1)
Quarter: 2018Q4

REPORT INFORMATION
  Report Type: Spontaneous
  Country: US (occurrence: US)
  Receive Date: 20181029
  Receipt Date: 20181029
  Transmission Date: 20190205
  Serious: No
  Sender: FDA-Public Use
  Company Number: None

PATIENT
  Age: 47 Year
  Sex: Male

DRUGS (1)
  1. HARVONI [Suspect]
     Active Substance: LEDIPASVIR\SOFOSBUVIR
     Route: 048
     Dates: start: 20181026

REACTIONS (6)
  - Heart rate increased [None]
  - Tremor [None]
  - Feeling abnormal [None]
  - Panic attack [None]
  - Pain in extremity [None]
  - Agitation [None]

NARRATIVE: CASE EVENT DATE: 20181026
